FAERS Safety Report 5965187-8 (Version None)
Quarter: 2008Q4

REPORT INFORMATION
  Report Type: 
  Country: None (occurrence: None)
  Receive Date: 20081125
  Receipt Date: 20080409
  Transmission Date: 20090506
  Serious: Yes (Congenital Anomaly)
  Sender: FDA-Public Use
  Company Number: CO-GENENTECH-272120

PATIENT
  Sex: Female

DRUGS (1)
  1. PULMOZYME [Suspect]
     Indication: CYSTIC FIBROSIS
     Dosage: 2.5 MG, QD
     Route: 064
     Dates: start: 20051101, end: 20070630

REACTIONS (1)
  - CLEFT PALATE [None]
